FAERS Safety Report 4919494-8 (Version None)
Quarter: 2006Q1

REPORT INFORMATION
  Report Type: 
  Country: None (occurrence: None)
  Receive Date: 20060222
  Receipt Date: 20060209
  Transmission Date: 20060701
  Serious: Yes (Hospitalization, Disabling, Other)
  Sender: FDA-Public Use
  Company Number: US-MERCK-0602USA03668

PATIENT
  Age: 62 Year
  Sex: Male
  Weight: 107 kg

DRUGS (11)
  1. VIOXX [Suspect]
     Indication: BACK PAIN
     Route: 048
     Dates: start: 20010804, end: 20040801
  2. VIOXX [Suspect]
     Route: 048
     Dates: start: 20010804, end: 20040801
  3. ADALAT [Concomitant]
     Route: 065
     Dates: start: 20010804, end: 20031213
  4. GLUCOPHAGE [Concomitant]
     Indication: DIABETES MELLITUS
     Route: 065
     Dates: start: 20010731, end: 20010821
  5. LISINOPRIL [Concomitant]
     Route: 065
     Dates: start: 20010804
  6. TOPROL-XL [Concomitant]
     Route: 065
     Dates: start: 20000511
  7. CRESTOR [Concomitant]
     Indication: ARTERIOSCLEROSIS
     Route: 065
     Dates: start: 19990101
  8. ZOCOR [Concomitant]
     Indication: ARTERIOSCLEROSIS
     Route: 065
     Dates: start: 19990101
  9. AMARYL [Concomitant]
     Route: 065
  10. LASIX [Concomitant]
     Route: 065
     Dates: start: 20010731, end: 20010821
  11. LASIX [Concomitant]
     Route: 065
     Dates: start: 20030929, end: 20031213

REACTIONS (5)
  - ACUTE MYOCARDIAL INFARCTION [None]
  - ARTERIOSCLEROSIS [None]
  - DIABETES MELLITUS [None]
  - DYSLIPIDAEMIA [None]
  - GASTROOESOPHAGEAL REFLUX DISEASE [None]
